FAERS Safety Report 23400084 (Version 1)
Quarter: 2024Q1

REPORT INFORMATION
  Report Type: Report from Study
  Country: US (occurrence: US)
  Receive Date: 20240114
  Receipt Date: 20240114
  Transmission Date: 20240409
  Serious: Yes (Other)
  Sender: FDA-Public Use
  Company Number: US-002147023-NVSC2023US261551

PATIENT
  Sex: Female

DRUGS (1)
  1. KISQALI [Suspect]
     Active Substance: RIBOCICLIB
     Indication: Product used for unknown indication
     Dosage: UNK
     Route: 065

REACTIONS (10)
  - Bronchiectasis [Unknown]
  - Pneumonia [Unknown]
  - Metastases to liver [Unknown]
  - Abdominal rigidity [Unknown]
  - Feeding disorder [Unknown]
  - Weight decreased [Unknown]
  - Illness [Unknown]
  - Product use complaint [Unknown]
  - Abdominal pain upper [Unknown]
  - Oropharyngeal pain [Unknown]
